FAERS Safety Report 5269553-8 (Version None)
Quarter: 2007Q1

REPORT INFORMATION
  Report Type: 
  Country: None (occurrence: None)
  Receive Date: 20070320
  Receipt Date: 20070313
  Transmission Date: 20070707
  Serious: Yes (Hospitalization, Other)
  Sender: FDA-Public Use
  Company Number: PHRM2007FR00913

PATIENT
  Age: 90 Year
  Sex: Male
  Weight: 70 kg

DRUGS (11)
  1. VOLTAREN [Suspect]
     Indication: SCIATICA
     Dosage: 75 MG, UNK
     Route: 048
     Dates: start: 20070209, end: 20070215
  2. VOLTAREN [Suspect]
     Indication: SCIATICA
     Dosage: 75 MG, ONCE/SINGLE
     Route: 030
     Dates: start: 20070215, end: 20070215
  3. ACETAMINOPHEN [Concomitant]
     Route: 048
  4. STRESAM [Concomitant]
     Route: 048
  5. TANAKAN [Concomitant]
     Route: 048
  6. PERMIXON [Concomitant]
     Route: 048
  7. PHYSIOTENS [Concomitant]
     Route: 048
  8. RANITIDINE [Concomitant]
     Route: 048
  9. CLARITIN [Concomitant]
     Route: 048
  10. SPASMINE [Concomitant]
  11. DOXAZOSIN MESYLATE [Concomitant]
     Route: 048

REACTIONS (4)
  - HAEMATOMA [None]
  - INJECTION SITE HAEMATOMA [None]
  - INJECTION SITE PAIN [None]
  - MUSCLE HAEMORRHAGE [None]
